FAERS Safety Report 13525904 (Version 1)
Quarter: 2017Q2

REPORT INFORMATION
  Report Type: Spontaneous
  Country: US (occurrence: US)
  Receive Date: 20170508
  Receipt Date: 20170508
  Transmission Date: 20170830
  Serious: Yes (Death)
  Sender: FDA-Public Use
  Company Number: None

PATIENT
  Age: 52 Year
  Sex: Male

DRUGS (12)
  1. AVASTIN [Concomitant]
     Active Substance: BEVACIZUMAB
  2. VITAMIN C [Concomitant]
     Active Substance: ASCORBIC ACID
  3. ATIVAN [Concomitant]
     Active Substance: LORAZEPAM
  4. PROBIOTIC [Concomitant]
     Active Substance: PROBIOTICS NOS
  5. GLUTAMINE [Concomitant]
     Active Substance: GLUTAMINE
  6. TEMOZOLOMIDE 140MG [Suspect]
     Active Substance: TEMOZOLOMIDE
     Indication: BRAIN NEOPLASM
     Route: 048
     Dates: start: 20170408, end: 20170416
  7. OLIVE LEAF [Concomitant]
  8. COQ10 [Concomitant]
     Active Substance: UBIDECARENONE
  9. MULTI-VITAMIN [Concomitant]
     Active Substance: .ALPHA.-TOCOPHEROL ACETATE, DL-\ASCORBIC ACID\CYANOCOBALAMIN\FLUORIDE ION\FOLIC ACID\NIACIN\PYRIDOXINE\RIBOFLAVIN\THIAMINE\VITAMIN A\VITAMIN D
  10. TEMOZOLOMIDE 5MG [Suspect]
     Active Substance: TEMOZOLOMIDE
     Indication: BRAIN NEOPLASM
     Route: 048
     Dates: start: 20170408, end: 20170416
  11. FISH OIL [Concomitant]
     Active Substance: FISH OIL
  12. DEPAKOTE ER [Concomitant]
     Active Substance: DIVALPROEX SODIUM

REACTIONS (1)
  - Death [None]

NARRATIVE: CASE EVENT DATE: 20170416
